FAERS Safety Report 22623770 (Version 1)
Quarter: 2023Q2

REPORT INFORMATION
  Report Type: Spontaneous
  Country: CO (occurrence: CO)
  Receive Date: 20230621
  Receipt Date: 20230621
  Transmission Date: 20230722
  Serious: Yes (Other)
  Sender: FDA-Public Use
  Company Number: CO-MACLEODS PHARMACEUTICALS US LTD-MAC2023041866

PATIENT

DRUGS (4)
  1. CLOBETASOL [Suspect]
     Active Substance: CLOBETASOL
     Indication: Pityriasis lichenoides et varioliformis acuta
     Dosage: UNK(CREAM)
     Route: 061
  2. METHOTREXATE [Concomitant]
     Active Substance: METHOTREXATE
     Indication: Pityriasis lichenoides et varioliformis acuta
     Dosage: 0.4 MILLIGRAM/KILOGRAM, Q.W.
     Route: 065
  3. FOLIC ACID [Concomitant]
     Active Substance: FOLIC ACID
     Indication: Pityriasis lichenoides et varioliformis acuta
     Dosage: UNK
     Route: 065
  4. ERYTHROMYCIN [Concomitant]
     Active Substance: ERYTHROMYCIN
     Indication: Pityriasis lichenoides et varioliformis acuta
     Dosage: 40 MILLIGRAM/KILOGRAM, QD
     Route: 065

REACTIONS (1)
  - Cushing^s syndrome [Unknown]
